FAERS Safety Report 4867891-1 (Version None)
Quarter: 2005Q4

REPORT INFORMATION
  Report Type: 
  Country: None (occurrence: None)
  Receive Date: 20051227
  Receipt Date: 20051212
  Transmission Date: 20060501
  Serious: No
  Sender: FDA-Public Use
  Company Number: 2005-135772-NL

PATIENT
  Age: 63 Year
  Sex: Female

DRUGS (1)
  1. PANCREATIN TRIPLE STRENGTH CAP [Suspect]
     Dosage: 1 DF VAGINAL
     Route: 067

REACTIONS (3)
  - MEDICATION ERROR [None]
  - VAGINAL ERYTHEMA [None]
  - VULVOVAGINAL DISCOMFORT [None]
